FAERS Safety Report 11829305 (Version 1)
Quarter: 2015Q4

REPORT INFORMATION
  Report Type: Spontaneous
  Country: US (occurrence: US)
  Receive Date: 20151211
  Receipt Date: 20151211
  Transmission Date: 20160305
  Serious: No
  Sender: FDA-Public Use
  Company Number: US-BAUSCH-BL-2015-012663

PATIENT
  Age: 64 Year
  Sex: Male
  Weight: 87.17 kg

DRUGS (2)
  1. XENAZINE [Suspect]
     Active Substance: TETRABENAZINE
     Route: 048
     Dates: start: 201412
  2. XENAZINE [Suspect]
     Active Substance: TETRABENAZINE
     Indication: HUNTINGTON^S DISEASE
     Route: 048
     Dates: start: 20141030

REACTIONS (3)
  - Back pain [Recovering/Resolving]
  - Muscle spasms [Recovering/Resolving]
  - Weight decreased [Recovered/Resolved]

NARRATIVE: CASE EVENT DATE: 201503
